FAERS Safety Report 15807722 (Version 1)
Quarter: 2019Q1

REPORT INFORMATION
  Report Type: Spontaneous
  Country: US (occurrence: US)
  Receive Date: 20190110
  Receipt Date: 20190110
  Transmission Date: 20190417
  Serious: Yes (Other)
  Sender: FDA-Public Use
  Company Number: US-PFIZER INC-2019009512

PATIENT
  Age: 50 Year
  Sex: Female
  Weight: 81 kg

DRUGS (3)
  1. CELEBREX [Concomitant]
     Active Substance: CELECOXIB
     Indication: RHEUMATOID ARTHRITIS
     Dosage: 150 MG, 2X/DAY
     Route: 048
     Dates: start: 201802
  2. BUTRANS [Concomitant]
     Active Substance: BUPRENORPHINE
     Dosage: UNK
     Route: 062
  3. LYRICA [Suspect]
     Active Substance: PREGABALIN
     Indication: RHEUMATOID ARTHRITIS
     Dosage: 75 MG, 2X/DAY
     Route: 048

REACTIONS (2)
  - Breast cancer stage IV [Recovered/Resolved with Sequelae]
  - Product use in unapproved indication [Unknown]

NARRATIVE: CASE EVENT DATE: 201710
